FAERS Safety Report 18890300 (Version 2)
Quarter: 2021Q1

REPORT INFORMATION
  Report Type: Spontaneous
  Country: US (occurrence: US)
  Receive Date: 20210214
  Receipt Date: 20210224
  Transmission Date: 20210420
  Serious: No
  Sender: FDA-Public Use
  Company Number: US-ASTRAZENECA-2021A028144

PATIENT
  Sex: Female
  Weight: 57.2 kg

DRUGS (5)
  1. BYDUREON [Suspect]
     Active Substance: EXENATIDE
     Indication: DIABETES MELLITUS
     Dosage: 2 MG, ONCE WEEK, STARTING YEARS AGO, WENT OFF AND BACK ON ABOUT 2 MONTHS AGO
     Route: 065
  2. METFORMIN [Concomitant]
     Active Substance: METFORMIN HYDROCHLORIDE
     Indication: DIABETES MELLITUS
     Dosage: ON METFORMIN FOR AT LEAST 5 OR 10 YEARS AGO, TAKING METFORMIN 1000 IN AM AND PM
     Route: 065
  3. BYDUREON [Suspect]
     Active Substance: EXENATIDE
     Indication: DIABETES MELLITUS
     Route: 065
  4. METFORMIN [Concomitant]
     Active Substance: METFORMIN HYDROCHLORIDE
     Indication: DIABETES MELLITUS
     Dosage: STARTED METFORMIN SOME 30 YEARS AGO
     Route: 065
  5. METFORMIN [Concomitant]
     Active Substance: METFORMIN HYDROCHLORIDE
     Indication: DIABETES MELLITUS
     Dosage: CUT DOWN DROPPED METFORMIN TO 500 AM AND PM STARTING 4 DAYS AGO, HAPPENED A LONG TIME AGO AND AGA...
     Route: 065

REACTIONS (4)
  - Device leakage [Unknown]
  - Wrong technique in device usage process [Unknown]
  - Blood glucose decreased [Recovering/Resolving]
  - Eating disorder [Unknown]
